FAERS Safety Report 7819915-7 (Version None)
Quarter: 2011Q4

REPORT INFORMATION
  Report Type: 
  Country: None (occurrence: None)
  Receive Date: 20111018
  Receipt Date: 20101208
  Transmission Date: 20120403
  Serious: No
  Sender: FDA-Public Use
  Company Number: US-ASTRAZENECA-2010SE58777

PATIENT
  Sex: Male
  Weight: 133.8 kg

DRUGS (10)
  1. LYRICA [Concomitant]
  2. ASPIRIN [Concomitant]
  3. SYMBICORT [Suspect]
     Indication: CHRONIC OBSTRUCTIVE PULMONARY DISEASE
     Route: 055
  4. LOTRIL [Concomitant]
  5. GLYBURIDE [Concomitant]
  6. SYMBICORT [Suspect]
     Indication: BRONCHITIS
     Route: 055
  7. SYMBICORT [Suspect]
     Indication: ASTHMA
     Route: 055
  8. METFORMIN HYDROCHLORIDE [Concomitant]
  9. SPIRIVA [Suspect]
     Route: 065
  10. VICODIN [Concomitant]

REACTIONS (2)
  - BLOOD GLUCOSE DECREASED [None]
  - BLOOD GLUCOSE INCREASED [None]
